FAERS Safety Report 6077499-0 (Version None)
Quarter: 2009Q1

REPORT INFORMATION
  Report Type: 
  Country: None (occurrence: None)
  Receive Date: 20090211
  Receipt Date: 20090126
  Transmission Date: 20090719
  Serious: Yes (Other)
  Sender: FDA-Public Use
  Company Number: 8042455

PATIENT
  Sex: Male
  Weight: 70 kg

DRUGS (1)
  1. KEPPRA [Suspect]
     Indication: PARTIAL SEIZURES
     Dosage: 750 MG 2/D
     Dates: start: 20080301

REACTIONS (1)
  - LEUKOPENIA [None]
